FAERS Safety Report 6483791-8 (Version None)
Quarter: 2009Q4

REPORT INFORMATION
  Report Type: 
  Country: None (occurrence: None)
  Receive Date: 20091209
  Receipt Date: 20091130
  Transmission Date: 20100525
  Serious: Yes (Disabling)
  Sender: FDA-Public Use
  Company Number: JP-ASTRAZENECA-2009SE24624

PATIENT
  Age: 36 Year
  Sex: Female

DRUGS (10)
  1. ANANAPEINE INJECTION [Suspect]
     Indication: EPIDURAL ANAESTHESIA
     Dosage: 7.5 MG/ML, 15-22.5MG (4 TIMES, A TOTAL OF 78.75 MG)
     Route: 008
     Dates: start: 20080215, end: 20080215
  2. ANANAPEINE INJECTION [Suspect]
     Indication: POSTOPERATIVE ANALGESIA
     Dosage: 7.5 MG/ML, 15-22.5MG (4 TIMES, A TOTAL OF 78.75 MG)
     Route: 008
     Dates: start: 20080215, end: 20080215
  3. ANANAPEINE INJECTION [Suspect]
     Dosage: THE MIXTURE OF ROPIVACAINE 100MG AND FENTANYL CITRATE 0.2MG WAS ADMINISTERED AT 4ML/HOUR 400-600 MG
     Route: 008
     Dates: start: 20080215, end: 20080221
  4. ANANAPEINE INJECTION [Suspect]
     Dosage: THE MIXTURE OF ROPIVACAINE 100MG AND FENTANYL CITRATE 0.2MG WAS ADMINISTERED AT 4ML/HOUR 400-600 MG
     Route: 008
     Dates: start: 20080215, end: 20080221
  5. FENTANYL CITRATE [Concomitant]
     Indication: POSTOPERATIVE ANALGESIA
     Dosage: THE MIXTURE OF ROPIVACAINE 200MG AND FENTANYL CITRATE 0.2MG WAS ADMINISTERED AT 4ML/HOUR.
     Route: 008
  6. FENTANYL CITRATE [Concomitant]
     Indication: ANAESTHESIA
     Dosage: THE MIXTURE OF ROPIVACAINE 200MG AND FENTANYL CITRATE 0.2MG WAS ADMINISTERED AT 4ML/HOUR.
     Route: 008
  7. PROPOFOL [Concomitant]
     Indication: ANAESTHESIA
  8. VECURONIUM BROMIDE [Concomitant]
     Indication: ANAESTHESIA
  9. SEVOFLURANE [Concomitant]
     Indication: ANAESTHESIA
  10. XYLOCAINE [Concomitant]

REACTIONS (1)
  - LUMBAR RADICULOPATHY [None]
